FAERS Safety Report 4378097-7 (Version None)
Quarter: 2004Q2

REPORT INFORMATION
  Report Type: 
  Country: None (occurrence: None)
  Receive Date: 20040616
  Receipt Date: 20040510
  Transmission Date: 20050107
  Serious: Yes (Hospitalization)
  Sender: FDA-Public Use
  Company Number: PHFR2004GB02057

PATIENT
  Age: 48 Year
  Sex: Male

DRUGS (1)
  1. TERBINAFINE HCL [Suspect]
     Indication: FUNGAL SKIN INFECTION
     Dosage: 250 MG, QD
     Route: 048
     Dates: start: 20040406, end: 20040410

REACTIONS (3)
  - HAIRY CELL LEUKAEMIA [None]
  - LEUKOPENIA [None]
  - THROMBOCYTOPENIA [None]
